FAERS Safety Report 8317520 (Version 8)
Quarter: 2013Q4

REPORT INFORMATION
  Report Type: Spontaneous
  Country: JP (occurrence: JP)
  Receive Date: 20111231
  Receipt Date: 20131226
  Transmission Date: 20140711
  Serious: Yes (Hospitalization, Other)
  Sender: FDA-Public Use
  Company Number: PHHY2011JP111352

PATIENT
  Age: 32 Year
  Sex: Female
  Weight: 63 kg

DRUGS (9)
  1. CICLOSPORIN [Suspect]
     Indication: APLASTIC ANAEMIA
     Dosage: 200 MG, DAILY
     Route: 048
  2. CICLOSPORIN [Suspect]
     Dosage: 60 MG, UNK
     Route: 048
  3. PREDNISOLONE [Concomitant]
     Indication: APLASTIC ANAEMIA
     Route: 048
  4. BETAMETHASONE [Concomitant]
     Dosage: 12 MG, UNK
  5. PROPOFOL [Concomitant]
  6. ROCURONIUM [Concomitant]
  7. MIDAZOLAM [Concomitant]
  8. FENTANYL [Concomitant]
  9. NICARDIPINE [Concomitant]

REACTIONS (10)
  - Gestational hypertension [Recovering/Resolving]
  - Hypertension [Unknown]
  - Oedema [Unknown]
  - Proteinuria [Unknown]
  - Renal impairment [Unknown]
  - Premature delivery [Unknown]
  - Foetal disorder [Unknown]
  - Amniotic cavity infection [Unknown]
  - Haemoglobin decreased [Unknown]
  - Exposure during pregnancy [Unknown]
